FAERS Safety Report 9236736 (Version 2)
Quarter: 2013Q2

REPORT INFORMATION
  Report Type: Spontaneous
  Country: JP (occurrence: JP)
  Receive Date: 20130417
  Receipt Date: 20130426
  Transmission Date: 20140414
  Serious: Yes (Other)
  Sender: FDA-Public Use
  Company Number: JP-GLAXOSMITHKLINE-B0882473A

PATIENT
  Age: 77 Year
  Sex: Male

DRUGS (2)
  1. AVOLVE [Suspect]
     Indication: BENIGN PROSTATIC HYPERPLASIA
     Dosage: .5MG PER DAY
     Route: 048
     Dates: start: 20130328
  2. NESINA [Concomitant]
     Route: 048

REACTIONS (3)
  - Chromaturia [Recovered/Resolved]
  - Urethral haemorrhage [Unknown]
  - Blood urine [Unknown]
